FAERS Safety Report 5469887-8 (Version None)
Quarter: 2007Q3

REPORT INFORMATION
  Report Type: 
  Country: None (occurrence: None)
  Receive Date: 20070927
  Receipt Date: 20070926
  Transmission Date: 20080115
  Serious: Yes (Hospitalization)
  Sender: FDA-Public Use
  Company Number: US-BRISTOL-MYERS SQUIBB COMPANY-13919469

PATIENT
  Age: 69 Year
  Sex: Male
  Weight: 85 kg

DRUGS (3)
  1. ERBITUX [Suspect]
     Indication: SQUAMOUS CELL CARCINOMA
     Dosage: HELD 24-SEP-07 DUE TO HOSPITALIZATION.
     Dates: start: 20070917, end: 20070917
  2. CISPLATIN [Suspect]
     Indication: SQUAMOUS CELL CARCINOMA
     Dosage: DAY 22 WAS HELD 17-SEP-07 DUE TO NEUTROPENIA.
     Dates: start: 20070827, end: 20070827
  3. RADIATION THERAPY [Suspect]
     Indication: SQUAMOUS CELL CARCINOMA
     Dosage: DOSAGE FORM:3800GY
     Dates: end: 20070921

REACTIONS (6)
  - EXFOLIATIVE RASH [None]
  - NEUTROPHIL COUNT DECREASED [None]
  - ORAL PAIN [None]
  - STOMATITIS [None]
  - WEIGHT DECREASED [None]
  - WHITE BLOOD CELL COUNT DECREASED [None]
